FAERS Safety Report 9157709 (Version 3)
Quarter: 2013Q1

REPORT INFORMATION
  Report Type: Spontaneous
  Country: GB (occurrence: GB)
  Receive Date: 20130312
  Receipt Date: 20130329
  Transmission Date: 20140127
  Serious: Yes (Other)
  Sender: FDA-Public Use
  Company Number: GB-009507513-1303GBR002972

PATIENT
  Sex: Male

DRUGS (2)
  1. ISENTRESS [Suspect]
     Indication: HIV INFECTION
     Route: 048
  2. TRUVADA [Concomitant]

REACTIONS (4)
  - Loss of consciousness [Unknown]
  - Infarction [Unknown]
  - Gastrointestinal tube insertion [Unknown]
  - Wrong technique in drug usage process [Unknown]
